FAERS Safety Report 5000830-1 (Version None)
Quarter: 2006Q2

REPORT INFORMATION
  Report Type: 
  Country: None (occurrence: None)
  Receive Date: 20060512
  Receipt Date: 20050125
  Transmission Date: 20061013
  Serious: Yes (Hospitalization, Disabling)
  Sender: FDA-Public Use
  Company Number: US-MERCK-0501USA04116

PATIENT
  Age: 60 Year
  Sex: Female
  Weight: 68 kg

DRUGS (4)
  1. VIOXX [Suspect]
     Indication: MONARTHRITIS
     Route: 048
     Dates: start: 20031105, end: 20040901
  2. VIOXX [Suspect]
     Route: 048
     Dates: start: 20031105, end: 20040901
  3. LOTREL [Concomitant]
     Route: 065
  4. COREG [Concomitant]
     Route: 065

REACTIONS (13)
  - ACUTE MYOCARDIAL INFARCTION [None]
  - ANAEMIA [None]
  - CORONARY ARTERY DISEASE [None]
  - CORONARY ARTERY THROMBOSIS [None]
  - DYSPEPSIA [None]
  - GASTRITIS [None]
  - HIATUS HERNIA [None]
  - HYPERGLYCAEMIA [None]
  - ISCHAEMIC CARDIOMYOPATHY [None]
  - PALPITATIONS [None]
  - POLYP [None]
  - TACHYCARDIA [None]
  - UPPER GASTROINTESTINAL HAEMORRHAGE [None]
